FAERS Safety Report 8298606-5 (Version None)
Quarter: 2012Q2

REPORT INFORMATION
  Report Type: 
  Country: None (occurrence: None)
  Receive Date: 20120417
  Receipt Date: 20120404
  Transmission Date: 20120825
  Serious: Yes (Life-Threatening)
  Sender: FDA-Public Use
  Company Number: 2012MA004697

PATIENT
  Age: 72 Year
  Sex: Female

DRUGS (9)
  1. LISINOPRIL [Suspect]
     Indication: HYPERTENSION
     Dosage: 10 MG;QD;PO
     Route: 048
     Dates: end: 20120320
  2. AMITRIPTYLINE HCL [Concomitant]
  3. HUMULIN R [Concomitant]
  4. LEVOTHYROXINE SODIUM [Concomitant]
  5. ATENOLOL [Concomitant]
  6. ACETYLSALICYLIC ACID SRT [Concomitant]
  7. METFORMIN HYDROCHLORIDE [Suspect]
     Indication: TYPE 2 DIABETES MELLITUS
     Dosage: 850 MG;TID;PO
     Route: 048
     Dates: end: 20120320
  8. TRAMADOL HYDROCHLORIDE [Concomitant]
  9. SIMVASTATIN [Concomitant]

REACTIONS (3)
  - RENAL FAILURE ACUTE [None]
  - HYPERKALAEMIA [None]
  - METABOLIC ACIDOSIS [None]
